FAERS Safety Report 22051194 (Version 1)
Quarter: 2023Q1

REPORT INFORMATION
  Report Type: Spontaneous
  Country: CN (occurrence: CN)
  Receive Date: 20230301
  Receipt Date: 20230301
  Transmission Date: 20230418
  Serious: Yes (Life-Threatening, Hospitalization, Other)
  Sender: FDA-Public Use
  Company Number: CN-PFIZER INC-202300086333

PATIENT
  Age: 23 Year
  Sex: Female

DRUGS (3)
  1. CEFOPERAZONE SODIUM\SULBACTAM SODIUM [Suspect]
     Active Substance: CEFOPERAZONE SODIUM\SULBACTAM SODIUM
     Indication: Pneumonia bacterial
     Dosage: UNK
  2. VORICONAZOLE [Suspect]
     Active Substance: VORICONAZOLE
     Indication: Pneumonia fungal
     Dosage: UNK
  3. VANCOMYCIN [Suspect]
     Active Substance: VANCOMYCIN
     Indication: Pneumonia bacterial
     Dosage: UNK

REACTIONS (1)
  - Drug ineffective [Unknown]
